FAERS Safety Report 5486102-X (Version None)
Quarter: 2007Q4

REPORT INFORMATION
  Report Type: 
  Country: None (occurrence: None)
  Receive Date: 20071012
  Receipt Date: 20071008
  Transmission Date: 20080405
  Serious: Yes (Other)
  Sender: FDA-Public Use
  Company Number: 2007SP020328

PATIENT
  Age: 42 Year
  Sex: Female
  Weight: 46.2669 kg

DRUGS (2)
  1. CLARINEX [Suspect]
     Indication: DRUG USE FOR UNKNOWN INDICATION
     Dosage: PO
     Route: 048
  2. LUNESTA [Suspect]
     Indication: DRUG USE FOR UNKNOWN INDICATION
     Dosage: 3 MG; PRN; PO
     Route: 048

REACTIONS (3)
  - AMNESIA [None]
  - DRUG INTERACTION [None]
  - INCORRECT DOSE ADMINISTERED [None]
